FAERS Safety Report 6855914-X (Version None)
Quarter: 2010Q3

REPORT INFORMATION
  Report Type: 
  Country: None (occurrence: None)
  Receive Date: 20100716
  Receipt Date: 20100716
  Transmission Date: 20110219
  Serious: No
  Sender: FDA-Public Use
  Company Number: None

PATIENT
  Age: 57 Year
  Sex: Female
  Weight: 53.0709 kg

DRUGS (1)
  1. DOXORUBICIN HCL [Suspect]
     Indication: BREAST CANCER STAGE IV
     Dosage: 30 MG/M2 TO 46 MG IV BASE 3 BSA / 15 E MONTHLY IV
     Route: 042
     Dates: start: 20100526

REACTIONS (1)
  - FEELING HOT [None]
